FAERS Safety Report 24238850 (Version 1)
Quarter: 2024Q3

REPORT INFORMATION
  Report Type: Report from Study
  Country: US (occurrence: None)
  Receive Date: 20240822
  Receipt Date: 20240822
  Transmission Date: 20241017
  Serious: Yes (Other)
  Sender: ASTRAZENECA
  Company Number: 2024A186341

PATIENT
  Sex: Male

DRUGS (1)
  1. CALQUENCE [Suspect]
     Active Substance: ACALABRUTINIB
     Indication: Chronic lymphocytic leukaemia
     Route: 048
     Dates: start: 202212

REACTIONS (14)
  - Prostatomegaly [Unknown]
  - Prostatic specific antigen increased [Unknown]
  - Blood urine present [Unknown]
  - Chronic obstructive pulmonary disease [Unknown]
  - Lymphoedema [Unknown]
  - Sleep apnoea syndrome [Unknown]
  - Infection [Unknown]
  - Bronchitis [Unknown]
  - Fall [Unknown]
  - Contusion [Unknown]
  - Fear [Unknown]
  - Cough [Unknown]
  - Arthropathy [Unknown]
  - Product dose omission issue [Unknown]
